FAERS Safety Report 14283497 (Version 6)
Quarter: 2019Q1

REPORT INFORMATION
  Report Type: Spontaneous
  Country: ES (occurrence: ES)
  Receive Date: 20171213
  Receipt Date: 20190107
  Transmission Date: 20190417
  Serious: Yes (Hospitalization, Other)
  Sender: FDA-Public Use
  Company Number: ES-ALLERGAN-1770628US

PATIENT
  Age: 32 Year
  Sex: Female
  Weight: 100 kg

DRUGS (10)
  1. IMUREL [Suspect]
     Active Substance: AZATHIOPRINE SODIUM
     Indication: COLITIS ULCERATIVE
     Dosage: 1 DF, QAM (AT LUNCH)
     Route: 065
  2. CLIPPER [Suspect]
     Active Substance: BECLOMETHASONE DIPROPIONATE
     Indication: COLITIS ULCERATIVE
     Dosage: UNK
     Route: 065
  3. ALANERV [Concomitant]
     Active Substance: DIETARY SUPPLEMENT
     Route: 065
  4. MESALAZINE UNK [Suspect]
     Active Substance: MESALAMINE
     Dosage: UNK
     Route: 065
  5. LYRICA [Suspect]
     Active Substance: PREGABALIN
     Indication: BACK PAIN
     Dosage: UNK
     Route: 065
  6. IMUREL [Suspect]
     Active Substance: AZATHIOPRINE SODIUM
     Dosage: 1 DF, QAM (AT BREAKFAST)
     Route: 065
     Dates: start: 200903
  7. PENTASA [Suspect]
     Active Substance: MESALAMINE
     Indication: COLITIS ULCERATIVE
     Dosage: UNK
     Route: 054
  8. MESALAZINE UNK [Suspect]
     Active Substance: MESALAMINE
     Indication: COLITIS ULCERATIVE
     Dosage: UNK
     Route: 054
  9. IMUREL [Suspect]
     Active Substance: AZATHIOPRINE SODIUM
     Dosage: 4 DF, QD
     Route: 065
     Dates: start: 201006
  10. PENTASA [Suspect]
     Active Substance: MESALAMINE
     Dosage: UNK
     Route: 048

REACTIONS (12)
  - Dizziness [Unknown]
  - Haemolytic uraemic syndrome [Unknown]
  - Malaise [Recovered/Resolved]
  - Colitis ulcerative [Unknown]
  - Nausea [Unknown]
  - Fatigue [Unknown]
  - Pancreatitis acute [Unknown]
  - Thrombocytopenic purpura [Unknown]
  - Hypertension [Unknown]
  - Condition aggravated [Unknown]
  - Weight increased [Unknown]
  - Colitis ulcerative [Unknown]

NARRATIVE: CASE EVENT DATE: 200903
